FAERS Safety Report 5518488-1 (Version None)
Quarter: 2007Q4

REPORT INFORMATION
  Report Type: 
  Country: None (occurrence: None)
  Receive Date: 20071115
  Receipt Date: 20071105
  Transmission Date: 20080405
  Serious: Yes (Death)
  Sender: FDA-Public Use
  Company Number: DE-PFIZER INC-2007077298

PATIENT
  Sex: Male
  Weight: 80 kg

DRUGS (3)
  1. SUTENT [Suspect]
     Indication: METASTATIC RENAL CELL CARCINOMA
     Route: 048
     Dates: start: 20070329, end: 20070426
  2. SUTENT [Suspect]
     Route: 048
     Dates: start: 20070521, end: 20070617
  3. SUTENT [Suspect]
     Route: 048
     Dates: start: 20070702, end: 20070731

REACTIONS (1)
  - PULMONARY EMBOLISM [None]
